FAERS Safety Report 24810011 (Version 1)
Quarter: 2025Q1

REPORT INFORMATION
  Report Type: Spontaneous
  Country: BR (occurrence: BR)
  Receive Date: 20250106
  Receipt Date: 20250106
  Transmission Date: 20250408
  Serious: Yes (Hospitalization, Other)
  Sender: AMGEN
  Company Number: BR-AMGEN-BRASP2024256118

PATIENT
  Age: 18 Year
  Sex: Male

DRUGS (4)
  1. XGEVA [Suspect]
     Active Substance: DENOSUMAB
     Indication: Angiosarcoma
     Dosage: 120 MILLIGRAM, QMO
     Route: 065
     Dates: start: 202107
  2. EVEROLIMUS [Concomitant]
     Active Substance: EVEROLIMUS
     Indication: Angiosarcoma
     Dosage: 10 MILLIGRAM, QD
     Route: 065
     Dates: start: 202108
  3. EVEROLIMUS [Concomitant]
     Active Substance: EVEROLIMUS
     Dosage: 5 MILLIGRAM, QD
     Route: 065
     Dates: start: 202110
  4. EVEROLIMUS [Concomitant]
     Active Substance: EVEROLIMUS
     Dosage: 10 MILLIGRAM, QD
     Route: 065
     Dates: start: 202201

REACTIONS (7)
  - Erysipelas [Unknown]
  - Infection [Unknown]
  - Angiosarcoma [Unknown]
  - Mucosal inflammation [Unknown]
  - Impaired quality of life [Unknown]
  - Drug ineffective for unapproved indication [Unknown]
  - Off label use [Unknown]

NARRATIVE: CASE EVENT DATE: 20210101
